FAERS Safety Report 4721316-5 (Version None)
Quarter: 2005Q3

REPORT INFORMATION
  Report Type: 
  Country: None (occurrence: None)
  Receive Date: 20050721
  Receipt Date: 20040615
  Transmission Date: 20060218
  Serious: No
  Sender: FDA-Public Use
  Company Number: US-BRISTOL-MYERS SQUIBB COMPANY-12617288

PATIENT
  Age: 72 Year
  Sex: Female
  Weight: 90 kg

DRUGS (7)
  1. COUMADIN [Suspect]
     Indication: ATRIAL FIBRILLATION
     Dosage: PRESENT DOSE: 7.5MG X 6 DAYS + 5MG X 1 DAY= 50MG TOTAL DOSE PER WEEK
     Route: 048
     Dates: start: 20040505
  2. CELEBREX [Concomitant]
     Dates: start: 20040505
  3. INDAPAMIDE [Concomitant]
  4. PROPRANOLOL [Concomitant]
  5. LIPITOR [Concomitant]
  6. CALCIUM GLUCONATE [Concomitant]
  7. ASCORBIC ACID [Concomitant]

REACTIONS (1)
  - HYPOTRICHOSIS [None]
